FAERS Safety Report 18740406 (Version 1)
Quarter: 2021Q1

REPORT INFORMATION
  Report Type: Spontaneous
  Country: US (occurrence: US)
  Receive Date: 20210113
  Receipt Date: 20210113
  Transmission Date: 20210419
  Serious: Yes (Hospitalization)
  Sender: FDA-Public Use
  Company Number: None

PATIENT
  Age: 62 Year
  Sex: Male

DRUGS (1)
  1. H.P. ACTHAR [Suspect]
     Active Substance: CORTICOTROPIN
     Dosage: ?          OTHER DOSE:80 UNITS;?
     Route: 058
     Dates: start: 2020

REACTIONS (2)
  - Staphylococcal infection [None]
  - Upper limb fracture [None]

NARRATIVE: CASE EVENT DATE: 20210113
